FAERS Safety Report 5483248-7 (Version None)
Quarter: 2007Q4

REPORT INFORMATION
  Report Type: 
  Country: None (occurrence: None)
  Receive Date: 20071009
  Receipt Date: 20070925
  Transmission Date: 20080405
  Serious: Yes (Hospitalization)
  Sender: FDA-Public Use
  Company Number: GXKR2007IL08330

PATIENT
  Age: 52 Year
  Sex: Male

DRUGS (4)
  1. ASPIRIN [Suspect]
     Indication: THROMBOSIS PROPHYLAXIS
     Dosage: 100 MG, QD
  2. CLOPIDOGREL [Concomitant]
  3. BETA BLOCKING AGENTS [Concomitant]
  4. STATINES [Concomitant]

REACTIONS (7)
  - CARDIAC FAILURE CONGESTIVE [None]
  - CORONARY ANGIOPLASTY [None]
  - CORONARY ARTERY OCCLUSION [None]
  - DRUG WITHDRAWAL SYNDROME [None]
  - ELECTROCARDIOGRAM ST SEGMENT ELEVATION [None]
  - MYOCARDIAL INFARCTION [None]
  - THROMBOSIS IN DEVICE [None]
